FAERS Safety Report 8539204-5 (Version None)
Quarter: 2012Q3

REPORT INFORMATION
  Report Type: 
  Country: None (occurrence: None)
  Receive Date: 20120726
  Receipt Date: 20120720
  Transmission Date: 20120928
  Serious: Yes (Hospitalization)
  Sender: FDA-Public Use
  Company Number: DE-SANOFI-AVENTIS-2012SA049253

PATIENT
  Age: 82 Year
  Sex: Male

DRUGS (5)
  1. PREDNISOLONE [Concomitant]
     Indication: PREMEDICATION
     Route: 048
  2. CLEMASTINE [Concomitant]
     Indication: PREMEDICATION
     Route: 042
  3. JEVTANA KIT [Suspect]
     Indication: PROSTATE CANCER
     Route: 051
  4. RANITIDINE [Concomitant]
     Route: 042
  5. JEVTANA KIT [Suspect]
     Route: 051
     Dates: start: 20120627, end: 20120627

REACTIONS (3)
  - GENERAL PHYSICAL HEALTH DETERIORATION [None]
  - PNEUMONIA [None]
  - HYPOGLYCAEMIA [None]
